FAERS Safety Report 19999865 (Version 1)
Quarter: 2021Q4

REPORT INFORMATION
  Report Type: Report from Study
  Country: EG (occurrence: EG)
  Receive Date: 20211026
  Receipt Date: 20211026
  Transmission Date: 20220303
  Serious: Yes (Hospitalization, Other)
  Sender: FDA-Public Use
  Company Number: EG-NOVARTISPH-NVSC2021EG239368

PATIENT
  Age: 71 Year
  Sex: Male

DRUGS (8)
  1. ENTRESTO [Suspect]
     Active Substance: SACUBITRIL\VALSARTAN
     Indication: Cardiac failure
     Dosage: 0.5 DF, BID
     Route: 048
     Dates: start: 20210315
  2. VALSARTAN [Suspect]
     Active Substance: VALSARTAN
     Indication: Product used for unknown indication
     Dosage: 1 DF, BID (START DATE 2015 OR 2016)
     Route: 048
     Dates: end: 202103
  3. SPECTONE [Concomitant]
     Indication: Product used for unknown indication
     Dosage: 1 DF, QD (AFTER LUNCH)
     Route: 065
  4. EXAMIDE [Concomitant]
     Indication: Product used for unknown indication
     Dosage: 1 DF, QD
     Route: 065
  5. CORDARONE [Concomitant]
     Active Substance: AMIODARONE HYDROCHLORIDE
     Indication: Product used for unknown indication
     Dosage: 1 DF, QD (AFTER BREAKFAST EXPECT THURSDAYS AND FRIDAYS)
     Route: 065
  6. CARDIXIN [Concomitant]
     Indication: Product used for unknown indication
     Dosage: 0.5 DF, QD (AFTER BREAKFAST)
     Route: 065
  7. ASPIRIN [Concomitant]
     Active Substance: ASPIRIN
     Indication: Product used for unknown indication
     Dosage: 1 DF, QD (AFTER LUNCH)
     Route: 065
  8. FEBUXOSTAT [Concomitant]
     Active Substance: FEBUXOSTAT
     Indication: Product used for unknown indication
     Dosage: 0.5 DF, QD
     Route: 065

REACTIONS (9)
  - Fatigue [Recovered/Resolved]
  - Ejection fraction decreased [Recovered/Resolved]
  - Blood creatinine increased [Recovering/Resolving]
  - Pulmonary oedema [Recovered/Resolved]
  - Dyspnoea [Recovering/Resolving]
  - Gait inability [Recovered/Resolved]
  - Wrong technique in product usage process [Not Recovered/Not Resolved]
  - Underdose [Not Recovered/Not Resolved]
  - Drug ineffective [Recovered/Resolved]

NARRATIVE: CASE EVENT DATE: 20160101
